FAERS Safety Report 15586650 (Version 1)
Quarter: 2018Q4

REPORT INFORMATION
  Report Type: Other
  Country: CA (occurrence: CA)
  Receive Date: 20181105
  Receipt Date: 20181105
  Transmission Date: 20190205
  Serious: Yes (Hospitalization)
  Sender: FDA-Public Use
  Company Number: CA-APOTEX-2018AP023643

PATIENT

DRUGS (5)
  1. LOXAPINE. [Concomitant]
     Active Substance: LOXAPINE
     Indication: PRODUCT USED FOR UNKNOWN INDICATION
  2. CARBAMAZEPINE. [Suspect]
     Active Substance: CARBAMAZEPINE
     Indication: ADJUVANT THERAPY
     Dosage: UNK
     Route: 065
  3. CARBAMAZEPINE. [Suspect]
     Active Substance: CARBAMAZEPINE
     Indication: ADJUVANT THERAPY
     Dosage: UNK
     Route: 065
  4. LOXAPINE. [Concomitant]
     Active Substance: LOXAPINE
     Indication: ADJUVANT THERAPY
     Dosage: UNK
     Route: 065
  5. ARIPIPRAZOLE. [Suspect]
     Active Substance: ARIPIPRAZOLE
     Indication: BIPOLAR DISORDER
     Dosage: 50 MG, UNK
     Route: 065

REACTIONS (2)
  - Overdose [Unknown]
  - Labelled drug-drug interaction medication error [Unknown]
